FAERS Safety Report 8209782-4 (Version None)
Quarter: 2012Q1

REPORT INFORMATION
  Report Type: 
  Country: None (occurrence: None)
  Receive Date: 20120314
  Receipt Date: 20120308
  Transmission Date: 20120608
  Serious: Yes (Death, Other)
  Sender: FDA-Public Use
  Company Number: DE-ROXANE LABORATORIES, INC.-2012-RO-00828RO

PATIENT
  Age: 69 Year
  Sex: Male

DRUGS (10)
  1. FLUCONAZOLE [Suspect]
     Indication: ANTIFUNGAL PROPHYLAXIS
  2. CLOFARABINE [Suspect]
     Indication: CHEMOTHERAPY
     Route: 042
  3. METRONIDAZOLE [Suspect]
     Indication: ANTIBIOTIC PROPHYLAXIS
  4. MYCOPHENOLATE MOFETIL [Suspect]
     Indication: PROPHYLAXIS AGAINST GRAFT VERSUS HOST DISEASE
  5. CYTARABINE [Suspect]
     Indication: CHEMOTHERAPY
     Route: 042
  6. CYCLOPHOSPHAMIDE [Suspect]
     Indication: BONE MARROW CONDITIONING REGIMEN
  7. ACYCLOVIR [Suspect]
     Indication: ANTIVIRAL PROPHYLAXIS
  8. CYCLOSPORINE [Suspect]
     Indication: PROPHYLAXIS AGAINST GRAFT VERSUS HOST DISEASE
  9. ANTI-THYMOCYTE GLOBULIN NOS [Suspect]
     Indication: BONE MARROW CONDITIONING REGIMEN
  10. LEVOFLOXACIN [Suspect]
     Indication: ANTIBIOTIC PROPHYLAXIS

REACTIONS (9)
  - BLOOD BILIRUBIN INCREASED [None]
  - SKIN TOXICITY [None]
  - MUCOSAL INFLAMMATION [None]
  - VENOOCCLUSIVE DISEASE [None]
  - MULTI-ORGAN FAILURE [None]
  - SEPSIS [None]
  - HEPATOTOXICITY [None]
  - OEDEMA [None]
  - PYREXIA [None]
